FAERS Safety Report 8191696-X (Version None)
Quarter: 2012Q1

REPORT INFORMATION
  Report Type: 
  Country: None (occurrence: None)
  Receive Date: 20120307
  Receipt Date: 20110425
  Transmission Date: 20120608
  Serious: No
  Sender: FDA-Public Use
  Company Number: US-ASTRAZENECA-2011SE23526

PATIENT
  Sex: Female

DRUGS (3)
  1. TOPAMAX [Concomitant]
  2. FIORICET [Concomitant]
  3. ZOMIG [Suspect]
     Route: 048

REACTIONS (1)
  - CIRCUMSTANCE OR INFORMATION CAPABLE OF LEADING TO MEDICATION ERROR [None]
